FAERS Safety Report 4274760-7 (Version None)
Quarter: 2004Q1

REPORT INFORMATION
  Report Type: 
  Country: None (occurrence: None)
  Receive Date: 20040116
  Receipt Date: 20040105
  Transmission Date: 20041129
  Serious: Yes (Hospitalization)
  Sender: FDA-Public Use
  Company Number: 2003-BP-09281AU

PATIENT
  Sex: Female

DRUGS (6)
  1. MEXITIL [Suspect]
     Indication: NEUROPATHIC PAIN
     Dosage: 300 MG (50 MG, 6 DAILY) PO
     Route: 048
     Dates: start: 20031001
  2. SERZONE (NEFAZODONE) (TA) [Concomitant]
  3. METHADONE 9METHADONE) (NR) [Concomitant]
  4. RABEPRAZOLE (RABEPRAZOLE) (NR) [Concomitant]
  5. COLOXYL (DOCUSATE SODIUM) (NR) [Concomitant]
  6. ALPRAZOLAM (NR) [Concomitant]

REACTIONS (4)
  - DEPRESSION [None]
  - GASTRITIS [None]
  - HOT FLUSH [None]
  - NAUSEA [None]
